FAERS Safety Report 9929831 (Version 2)
Quarter: 2014Q1

REPORT INFORMATION
  Report Type: Spontaneous
  Country: US (occurrence: US)
  Receive Date: 20140227
  Receipt Date: 20140227
  Transmission Date: 20141002
  Serious: Yes (Life-Threatening, Hospitalization, Other)
  Sender: FDA-Public Use
  Company Number: US-ABBVIE-11P-163-0852911-00

PATIENT
  Age: 15 Year
  Sex: Male
  Weight: 47.8 kg

DRUGS (30)
  1. HUMIRA [Suspect]
     Indication: CROHN^S DISEASE
     Dates: start: 20090512, end: 20091116
  2. HUMIRA [Suspect]
     Dates: start: 20091116, end: 20100331
  3. REMICADE [Suspect]
     Indication: CROHN^S DISEASE
     Route: 042
     Dates: start: 20051103, end: 20090429
  4. METHOTREXATE [Suspect]
     Indication: CROHN^S DISEASE
     Dates: start: 200704, end: 201003
  5. PREDNISONE [Suspect]
     Indication: CROHN^S DISEASE
  6. HYDROCORTISONE [Suspect]
     Indication: PRODUCT USED FOR UNKNOWN INDICATION
  7. CALCIUM CARBONATE [Concomitant]
     Indication: PRODUCT USED FOR UNKNOWN INDICATION
  8. IRON [Concomitant]
     Indication: PRODUCT USED FOR UNKNOWN INDICATION
     Dosage: 325 MG DAILY
  9. FOLIC ACID [Concomitant]
     Indication: PRODUCT USED FOR UNKNOWN INDICATION
  10. CHOLECALCIFEROL [Concomitant]
     Indication: PRODUCT USED FOR UNKNOWN INDICATION
  11. PEPTAMEN [Concomitant]
     Indication: PRODUCT USED FOR UNKNOWN INDICATION
  12. RIFAXIMIN [Concomitant]
     Indication: PRODUCT USED FOR UNKNOWN INDICATION
  13. IMODIUM [Concomitant]
     Indication: PRODUCT USED FOR UNKNOWN INDICATION
  14. MORPHINE [Concomitant]
     Indication: PRODUCT USED FOR UNKNOWN INDICATION
  15. COTRIMOXAZOLE [Concomitant]
     Indication: PRODUCT USED FOR UNKNOWN INDICATION
  16. MIRALAX [Concomitant]
     Indication: PRODUCT USED FOR UNKNOWN INDICATION
  17. SCOPOLAMINE [Concomitant]
     Indication: PRODUCT USED FOR UNKNOWN INDICATION
     Dosage: PATCH
  18. ZANTAC [Concomitant]
     Indication: PRODUCT USED FOR UNKNOWN INDICATION
  19. VANCOMYCIN [Concomitant]
     Indication: PRODUCT USED FOR UNKNOWN INDICATION
  20. ZOSYN [Concomitant]
     Indication: PRODUCT USED FOR UNKNOWN INDICATION
  21. FLUCONAZOLE [Concomitant]
     Indication: PRODUCT USED FOR UNKNOWN INDICATION
  22. CHLORHEXIDINE [Concomitant]
     Indication: PRODUCT USED FOR UNKNOWN INDICATION
     Dosage: ORAL RINSE
     Route: 048
  23. ZOFRAN [Concomitant]
     Indication: PRODUCT USED FOR UNKNOWN INDICATION
  24. NALBUPHINE [Concomitant]
     Indication: PRODUCT USED FOR UNKNOWN INDICATION
  25. ATIVAN [Concomitant]
     Indication: PRODUCT USED FOR UNKNOWN INDICATION
  26. OMEPRAZOLE [Concomitant]
     Indication: PRODUCT USED FOR UNKNOWN INDICATION
  27. OXYCODONE [Concomitant]
     Indication: PRODUCT USED FOR UNKNOWN INDICATION
  28. ALUMINUM HYDROXIDE [Concomitant]
     Indication: PRODUCT USED FOR UNKNOWN INDICATION
  29. ANTIBIOTICS [Concomitant]
     Indication: INFLAMMATORY BOWEL DISEASE
  30. AUGMENTIN [Concomitant]
     Indication: PRODUCT USED FOR UNKNOWN INDICATION

REACTIONS (45)
  - Pyrexia [Unknown]
  - Mucosal inflammation [Unknown]
  - Abdominal pain [Unknown]
  - Hospitalisation [Unknown]
  - Septic shock [Unknown]
  - Hypotension [Unknown]
  - Crohn^s disease [Unknown]
  - Pancytopenia [Unknown]
  - Viral infection [Unknown]
  - Myeloid leukaemia [Unknown]
  - Ejection fraction abnormal [Unknown]
  - Acute monocytic leukaemia [Recovered/Resolved]
  - Shock haemorrhagic [Recovered/Resolved]
  - Shock haemorrhagic [Recovered/Resolved]
  - Multi-organ failure [Recovered/Resolved]
  - Procedural complication [Recovered/Resolved]
  - Ascites [Unknown]
  - Haemoglobin decreased [Recovered/Resolved]
  - Haemoglobin decreased [Recovered/Resolved]
  - Transfusion reaction [Unknown]
  - Diarrhoea [Unknown]
  - Decreased appetite [Unknown]
  - Abdominal pain [Unknown]
  - Abdominal pain [Unknown]
  - Abdominal pain [Unknown]
  - Haematochezia [Unknown]
  - Vomiting [Unknown]
  - Flatulence [Unknown]
  - Pruritus [Unknown]
  - Feeding disorder [Unknown]
  - Vomiting [Unknown]
  - White blood cell count increased [Recovered/Resolved]
  - Pyrexia [Recovered/Resolved]
  - Hypotension [Recovered/Resolved]
  - Splenomegaly [Unknown]
  - Spleen disorder [Unknown]
  - Ascites [Unknown]
  - Large intestinal stenosis [Unknown]
  - Hyperphosphataemia [Recovered/Resolved]
  - Abdominal infection [Unknown]
  - Splenomegaly [Unknown]
  - Headache [Unknown]
  - Sinusitis [Unknown]
  - Hepatic lesion [Unknown]
  - Cholelithiasis [Unknown]
